FAERS Safety Report 9288027 (Version 3)
Quarter: 2013Q3

REPORT INFORMATION
  Report Type: Spontaneous
  Country: RU (occurrence: RU)
  Receive Date: 20130514
  Receipt Date: 20130702
  Transmission Date: 20140515
  Serious: Yes (Other)
  Sender: FDA-Public Use
  Company Number: RU-ELI_LILLY_AND_COMPANY-RU201305002028

PATIENT
  Age: 28 Year
  Sex: Male

DRUGS (3)
  1. HUMALOG LISPRO [Suspect]
     Indication: TYPE 1 DIABETES MELLITUS
     Dosage: 10 DF, TID
     Dates: start: 200802
  2. HUMALOG LISPRO [Suspect]
     Dosage: 24 IU, UNKNOWN
     Dates: end: 201304
  3. HUMULIN NPH [Concomitant]
     Indication: TYPE 1 DIABETES MELLITUS
     Dosage: 15 IU, BID
     Dates: start: 200802

REACTIONS (1)
  - Blood glucose increased [Recovered/Resolved]
